FAERS Safety Report 10994771 (Version 1)
Quarter: 2015Q2

REPORT INFORMATION
  Report Type: Spontaneous
  Country: GB (occurrence: GB)
  Receive Date: 20150407
  Receipt Date: 20150407
  Transmission Date: 20150821
  Serious: Yes (Hospitalization)
  Sender: FDA-Public Use
  Company Number: GB-SA-2015SA041115

PATIENT
  Age: 83 Year
  Sex: Male

DRUGS (9)
  1. ISOSORBIDE MONONITRATE. [Concomitant]
     Active Substance: ISOSORBIDE MONONITRATE
     Dosage: EVERY MORNING (OM)
     Route: 048
  2. NICORANDIL [Concomitant]
     Active Substance: NICORANDIL
     Route: 048
  3. TRAMADOL [Concomitant]
     Active Substance: TRAMADOL
     Dosage: AS NECESSARY (PRN) THREE TIMES DAILY (TDS)
     Route: 048
  4. CLOPIDOGREL BISULFATE. [Suspect]
     Active Substance: CLOPIDOGREL BISULFATE
     Dosage: EVERY MORNING (OM)
     Route: 048
  5. METOCLOPRAMIDE. [Concomitant]
     Active Substance: METOCLOPRAMIDE
     Dosage: 10MG AS NECESSARY (PRN), THREE TIMES DAILY (TDS)
     Route: 048
  6. FUROSEMIDE. [Concomitant]
     Active Substance: FUROSEMIDE
     Dosage: EVERY MORNING (OM)
     Route: 048
  7. ASPIRIN. [Suspect]
     Active Substance: ASPIRIN
     Dosage: EVERY MORNING (OM)
     Route: 048
     Dates: end: 20150312
  8. ATORVASTATIN [Concomitant]
     Active Substance: ATORVASTATIN
     Dosage: EVERY NIGHT (ON)
     Route: 048
  9. DIGOXIN. [Concomitant]
     Active Substance: DIGOXIN
     Dosage: EVERY MORNING (OM)
     Route: 048

REACTIONS (4)
  - Faeces discoloured [Unknown]
  - Gastrointestinal haemorrhage [Recovering/Resolving]
  - Clostridium difficile infection [Unknown]
  - Melaena [Unknown]
